FAERS Safety Report 9575251 (Version 2)
Quarter: 2013Q4

REPORT INFORMATION
  Report Type: Report from Study
  Country: HU (occurrence: HU)
  Receive Date: 20131001
  Receipt Date: 20131015
  Transmission Date: 20140711
  Serious: Yes (Hospitalization)
  Sender: FDA-Public Use
  Company Number: HU-GLAXOSMITHKLINE-B0926262A

PATIENT
  Sex: Female

DRUGS (2)
  1. SERETIDE DISKUS [Suspect]
     Indication: BRONCHITIS
     Route: 055
  2. SPIRIVA [Concomitant]
     Dosage: 1PUFF PER DAY

REACTIONS (8)
  - Gastric disorder [Recovered/Resolved]
  - Oral fungal infection [Recovered/Resolved]
  - Dyspnoea [Unknown]
  - Gastrooesophageal reflux disease [Unknown]
  - Fatigue [Unknown]
  - Dysphonia [Unknown]
  - Asthenia [Unknown]
  - Aphasia [Unknown]
